FAERS Safety Report 5340225-4 (Version None)
Quarter: 2007Q2

REPORT INFORMATION
  Report Type: 
  Country: None (occurrence: None)
  Receive Date: 20070405
  Receipt Date: 20070116
  Transmission Date: 20071010
  Serious: No
  Sender: FDA-Public Use
  Company Number: US200701003304

PATIENT
  Age: 77 Year
  Sex: Female

DRUGS (1)
  1. CYMBALTA [Suspect]
     Indication: DEPRESSION
     Dosage: 30 MG
     Dates: start: 20061201

REACTIONS (5)
  - AGEUSIA [None]
  - ANOREXIA [None]
  - CRYING [None]
  - DRUG INEFFECTIVE [None]
  - NASOPHARYNGITIS [None]
